FAERS Safety Report 5894470-X (Version None)
Quarter: 2008Q3

REPORT INFORMATION
  Report Type: 
  Country: None (occurrence: None)
  Receive Date: 20080923
  Receipt Date: 20080923
  Transmission Date: 20090109
  Serious: Yes (Hospitalization)
  Sender: FDA-Public Use
  Company Number: None

PATIENT
  Sex: Male
  Weight: 89.8122 kg

DRUGS (8)
  1. TAXOTERE [Suspect]
     Indication: PROSTATE CANCER
     Dosage: 137MGIVBP
     Route: 042
     Dates: start: 20080522, end: 20080902
  2. BEVACIZUMAB 15 MG/KG [Suspect]
     Indication: PROSTATE CANCER
     Dosage: 1385 MG IVBP
     Route: 042
     Dates: start: 20080522, end: 20080920
  3. RAD001 2.5MG [Suspect]
     Indication: PROSTATE CANCER
     Dosage: RAD 2.5MG PO
     Route: 048
     Dates: start: 20080522, end: 20080920
  4. LUPRON [Concomitant]
  5. TYLENOL (CAPLET) [Concomitant]
  6. TOPROL-XL [Concomitant]
  7. SIMVASTATIN [Concomitant]
  8. CAPTOPRIL [Concomitant]

REACTIONS (7)
  - CHILLS [None]
  - PLEURAL EFFUSION [None]
  - PLEURITIC PAIN [None]
  - PULMONARY EMBOLISM [None]
  - PULMONARY INFARCTION [None]
  - TACHYCARDIA [None]
  - URINARY TRACT INFECTION [None]
